FAERS Safety Report 8401847-7 (Version None)
Quarter: 2012Q2

REPORT INFORMATION
  Report Type: 
  Country: None (occurrence: None)
  Receive Date: 20120601
  Receipt Date: 20120527
  Transmission Date: 20120825
  Serious: Yes (Death)
  Sender: FDA-Public Use
  Company Number: US-JNJFOC-20120519976

PATIENT

DRUGS (4)
  1. INVEGA SUSTENNA [Suspect]
     Indication: PSYCHIATRIC SYMPTOM
     Route: 030
  2. RISPERDAL CONSTA [Suspect]
     Indication: PSYCHIATRIC SYMPTOM
     Route: 030
  3. INVEGA [Suspect]
     Indication: PSYCHIATRIC SYMPTOM
     Route: 048
  4. RISPERDAL [Suspect]
     Indication: PSYCHIATRIC SYMPTOM
     Route: 048

REACTIONS (1)
  - METABOLIC DISORDER [None]
